FAERS Safety Report 8266962-X (Version None)
Quarter: 2012Q2

REPORT INFORMATION
  Report Type: 
  Country: None (occurrence: None)
  Receive Date: 20120405
  Receipt Date: 20120405
  Transmission Date: 20120825
  Serious: No
  Sender: FDA-Public Use
  Company Number: None

PATIENT
  Age: 65 Year
  Sex: Male
  Weight: 97.5234 kg

DRUGS (2)
  1. TAMSULOSIN HCL [Suspect]
     Indication: PROSTATIC DISORDER
     Dosage: 1 CAPSULE AS NEEDED(2X'S WEEK)
  2. TAMSULOSIN HCL [Suspect]
     Dates: start: 20101201

REACTIONS (5)
  - INSOMNIA [None]
  - ASTHENIA [None]
  - SOMNOLENCE [None]
  - DIZZINESS [None]
  - VISION BLURRED [None]
